FAERS Safety Report 7437295-6 (Version None)
Quarter: 2011Q2

REPORT INFORMATION
  Report Type: 
  Country: None (occurrence: None)
  Receive Date: 20110426
  Receipt Date: 20110419
  Transmission Date: 20111010
  Serious: Yes (Other)
  Sender: FDA-Public Use
  Company Number: RU-GENZYME-FLUD-1001093

PATIENT
  Age: 49 Year
  Sex: Female

DRUGS (5)
  1. METHOTREXATE [Concomitant]
     Indication: PROPHYLAXIS AGAINST GRAFT VERSUS HOST DISEASE
     Dosage: UNK
     Route: 065
  2. FLUDARA [Suspect]
     Indication: TRANSPLANT
     Dosage: UNK
     Route: 065
  3. BUSULFAN [Suspect]
     Indication: TRANSPLANT
     Dosage: UNK
     Route: 065
  4. CYCLOSPORINE [Concomitant]
     Indication: PROPHYLAXIS AGAINST GRAFT VERSUS HOST DISEASE
     Dosage: UNK
     Route: 065
     Dates: end: 20080330
  5. DECITABINE [Concomitant]
     Indication: MYELODYSPLASTIC SYNDROME
     Dosage: 20 MG/M2, QD 1 HOUR INFUSION FOR 5 DAYS
     Route: 042

REACTIONS (1)
  - CHRONIC GRAFT VERSUS HOST DISEASE [None]
